FAERS Safety Report 23237486 (Version 4)
Quarter: 2024Q1

REPORT INFORMATION
  Report Type: Report from Study
  Country: JP (occurrence: JP)
  Receive Date: 20231128
  Receipt Date: 20240122
  Transmission Date: 20240410
  Serious: Yes (Life-Threatening, Hospitalization, Other)
  Sender: FDA-Public Use
  Company Number: JP-ONO-2023JP029259

PATIENT
  Age: 80 Year
  Sex: Male
  Weight: 57 kg

DRUGS (10)
  1. BRAFTOVI [Suspect]
     Active Substance: ENCORAFENIB
     Indication: Colon cancer
     Dosage: 300 MG, EVERYDAY
     Route: 048
     Dates: start: 20230901, end: 20230907
  2. CETUXIMAB [Concomitant]
     Active Substance: CETUXIMAB
     Indication: Colon cancer
     Dosage: 250 MG
     Route: 065
     Dates: start: 20230901, end: 20230901
  3. CLOPIDOGREL [Concomitant]
     Active Substance: CLOPIDOGREL BISULFATE
     Dosage: 75 MG, EVERYDAY
     Route: 048
     Dates: start: 20231013, end: 20231101
  4. EZETIMIBE\ROSUVASTATIN [Concomitant]
     Active Substance: EZETIMIBE\ROSUVASTATIN
     Dosage: 10 MG, EVERYDAY
     Route: 048
     Dates: start: 20231013, end: 20231101
  5. EDOXABAN TOSYLATE [Concomitant]
     Active Substance: EDOXABAN TOSYLATE
     Dosage: 15 MG, EVERYDAY
     Route: 048
     Dates: start: 20231013, end: 20231101
  6. LANSOPRAZOLE [Concomitant]
     Active Substance: LANSOPRAZOLE
     Dosage: 15 MG, EVERYDAY
     Route: 065
     Dates: start: 20231013, end: 20231101
  7. CANDESARTAN [Concomitant]
     Active Substance: CANDESARTAN
     Dosage: 2 MG, EVERYDAY
     Route: 048
     Dates: start: 20231013, end: 20231101
  8. FERROUS SULFATE [Concomitant]
     Active Substance: FERROUS SULFATE
     Dosage: 105 MG, EVERYDAY
     Route: 048
     Dates: start: 20231013, end: 20231101
  9. NIFEDIPINE [Concomitant]
     Active Substance: NIFEDIPINE
     Dosage: 5 MG, EVERYDAY
     Route: 048
     Dates: start: 20231013, end: 20231101
  10. LINAGLIPTIN [Concomitant]
     Active Substance: LINAGLIPTIN
     Dosage: 5 MG, EVERYDAY
     Route: 048
     Dates: start: 20231013, end: 20231101

REACTIONS (3)
  - Subdural haematoma [Recovered/Resolved]
  - Subdural haematoma [Recovered/Resolved]
  - Refusal of treatment by patient [Unknown]

NARRATIVE: CASE EVENT DATE: 20230907
